FAERS Safety Report 18132214 (Version 5)
Quarter: 2020Q4

REPORT INFORMATION
  Report Type: Report from Study
  Country: US (occurrence: US)
  Receive Date: 20200811
  Receipt Date: 20201015
  Transmission Date: 20210113
  Serious: No
  Sender: FDA-Public Use
  Company Number: NVSC2020US217859

PATIENT
  Age: 55 Year
  Sex: Male

DRUGS (6)
  1. LISINOPRIL. [Concomitant]
     Active Substance: LISINOPRIL
     Indication: PRODUCT USED FOR UNKNOWN INDICATION
     Dosage: UNK
     Route: 065
  2. ENTRESTO [Suspect]
     Active Substance: SACUBITRIL\VALSARTAN
     Route: 065
  3. ENTRESTO [Suspect]
     Active Substance: SACUBITRIL\VALSARTAN
     Route: 065
  4. ENTRESTO [Suspect]
     Active Substance: SACUBITRIL\VALSARTAN
     Indication: CARDIAC FAILURE CHRONIC
     Dosage: UNK
     Route: 065
     Dates: start: 20200801
  5. ENTRESTO [Suspect]
     Active Substance: SACUBITRIL\VALSARTAN
     Dosage: 100 MG, BID
     Route: 065
  6. ENTRESTO [Suspect]
     Active Substance: SACUBITRIL\VALSARTAN
     Dosage: 200 MG, BID (93/103 MG)
     Route: 065
     Dates: start: 20200930

REACTIONS (22)
  - Blood pressure abnormal [Unknown]
  - Decreased appetite [Unknown]
  - Dehydration [Unknown]
  - Fear [Unknown]
  - Panic reaction [Unknown]
  - Cardiac discomfort [Unknown]
  - Drug ineffective [Recovering/Resolving]
  - Emotional disorder [Unknown]
  - Therapeutic response unexpected [Recovering/Resolving]
  - Feeling abnormal [Unknown]
  - Hypersensitivity [Unknown]
  - Malaise [Recovering/Resolving]
  - Product dose omission in error [Unknown]
  - Anger [Unknown]
  - Cough [Unknown]
  - Palpitations [Unknown]
  - Sinusitis [Unknown]
  - Memory impairment [Unknown]
  - Fluid intake reduced [Unknown]
  - Nasal polyps [Unknown]
  - Blood cholesterol increased [Unknown]
  - Fatigue [Unknown]

NARRATIVE: CASE EVENT DATE: 20200915
